FAERS Safety Report 4734425-1 (Version None)
Quarter: 2005Q3

REPORT INFORMATION
  Report Type: 
  Country: None (occurrence: None)
  Receive Date: 20050804
  Receipt Date: 20050518
  Transmission Date: 20060218
  Serious: Yes (Life-Threatening, Other)
  Sender: FDA-Public Use
  Company Number: JP-BRISTOL-MYERS SQUIBB COMPANY-12975652

PATIENT
  Age: 70 Year
  Sex: Male

DRUGS (3)
  1. MAXIPIME [Suspect]
     Indication: SEPSIS
     Route: 041
     Dates: start: 20050514, end: 20050516
  2. MEROPEN [Suspect]
     Indication: SEPSIS
     Route: 041
     Dates: start: 20050513, end: 20050514
  3. FUTHAN [Suspect]
     Route: 041
     Dates: start: 20050418, end: 20050523

REACTIONS (5)
  - BLOOD PRESSURE DECREASED [None]
  - DECREASED APPETITE [None]
  - GENERAL PHYSICAL HEALTH DETERIORATION [None]
  - PRURITUS [None]
  - RASH [None]
